FAERS Safety Report 7124706-9 (Version None)
Quarter: 2010Q4

REPORT INFORMATION
  Report Type: 
  Country: None (occurrence: None)
  Receive Date: 20101122
  Receipt Date: 20101122
  Transmission Date: 20110411
  Serious: Yes (Other)
  Sender: FDA-Public Use
  Company Number: None

PATIENT
  Age: 59 Year
  Sex: Male
  Weight: 92.9874 kg

DRUGS (1)
  1. AVODART [Suspect]
     Indication: PROSTATOMEGALY
     Dosage: .5MG DAILY PO
     Route: 048
     Dates: start: 20100915, end: 20101029

REACTIONS (2)
  - MUSCLE TIGHTNESS [None]
  - PAIN IN JAW [None]
